FAERS Safety Report 5374268-1 (Version None)
Quarter: 2007Q2

REPORT INFORMATION
  Report Type: 
  Country: None (occurrence: None)
  Receive Date: 20070629
  Receipt Date: 20070531
  Transmission Date: 20071010
  Serious: Yes (Hospitalization)
  Sender: FDA-Public Use
  Company Number: FR-ROCHE-392248

PATIENT
  Age: 55 Year
  Sex: Male
  Weight: 74 kg

DRUGS (8)
  1. PEG-INTERFERON ALFA 2A (RO 25-8310) [Suspect]
     Indication: HEPATITIS C
     Route: 058
     Dates: start: 20040702, end: 20041215
  2. ACTRAPID [Concomitant]
  3. ASPIRIN [Concomitant]
  4. TENORMIN [Concomitant]
  5. FOZITEC [Concomitant]
  6. AMLODIPINE [Concomitant]
  7. POLARAMINE [Concomitant]
  8. NITROGLYCERIN [Concomitant]

REACTIONS (1)
  - ANGINA PECTORIS [None]
